FAERS Safety Report 8387215-5 (Version None)
Quarter: 2012Q2

REPORT INFORMATION
  Report Type: 
  Country: None (occurrence: None)
  Receive Date: 20120525
  Receipt Date: 20120510
  Transmission Date: 20120825
  Serious: Yes (Hospitalization, Other)
  Sender: FDA-Public Use
  Company Number: US-UCBSA-057677

PATIENT
  Age: 25 Year
  Sex: Male

DRUGS (15)
  1. LEUCOVORIN CALCIUM [Concomitant]
     Route: 048
  2. PROCHLORPERAZINE [Concomitant]
  3. METHOTREXATE [Interacting]
     Indication: SPINDLE CELL SARCOMA
  4. METHOTREXATE [Interacting]
     Dosage: FIRST CYCLE-12 G/M2 - 20G, SECOND CYCLE
  5. DOXORUBICIN HCL [Concomitant]
     Indication: SPINDLE CELL SARCOMA
  6. LEUCOVORIN CALCIUM [Concomitant]
     Route: 042
  7. RANITIDINE [Concomitant]
     Indication: PROPHYLAXIS AGAINST GASTROINTESTINAL ULCER
  8. LEUCOVORIN CALCIUM [Concomitant]
     Indication: SPINDLE CELL SARCOMA
     Route: 042
  9. LEUCOVORIN CALCIUM [Concomitant]
     Route: 042
  10. METHOTREXATE [Interacting]
     Indication: RETINOBLASTOMA
  11. DEXAMETHASONE [Concomitant]
     Indication: TENSION HEADACHE
  12. CISPLATIN [Concomitant]
     Indication: SPINDLE CELL SARCOMA
  13. HYDROMORPHONE HCL [Concomitant]
  14. OMEPRAZOLE [Suspect]
     Indication: PROPHYLAXIS AGAINST GASTROINTESTINAL ULCER
  15. METHOTREXATE [Interacting]
     Dosage: FIRST CYCLE-12 G/M2 - 20G, SECOND CYCLE

REACTIONS (5)
  - THROMBOCYTOPENIA [None]
  - GRAND MAL CONVULSION [None]
  - MUCOSAL INFLAMMATION [None]
  - DRUG INTERACTION [None]
  - RENAL FAILURE ACUTE [None]
